FAERS Safety Report 8070510-7 (Version None)
Quarter: 2012Q1

REPORT INFORMATION
  Report Type: 
  Country: None (occurrence: None)
  Receive Date: 20120125
  Receipt Date: 20120123
  Transmission Date: 20120608
  Serious: Yes (Hospitalization, Other)
  Sender: FDA-Public Use
  Company Number: BR-ABBOTT-11P-020-0854319-00

PATIENT
  Sex: Male
  Weight: 63 kg

DRUGS (6)
  1. APRESOLINE [Concomitant]
     Indication: HYPERTENSION
     Route: 048
  2. HUMIRA [Suspect]
     Indication: RHEUMATOID ARTHRITIS
     Route: 058
     Dates: start: 20110601, end: 20110601
  3. HUMIRA [Suspect]
     Route: 058
     Dates: end: 20110801
  4. HUMIRA [Suspect]
     Route: 058
  5. ENALAPRIL MALEATE [Concomitant]
     Indication: HYPERTENSION
     Route: 048
  6. PHENOBARBITAL TAB [Concomitant]
     Indication: BRAIN OPERATION
     Route: 048
     Dates: start: 19870101

REACTIONS (5)
  - JOINT INJURY [None]
  - PYREXIA [None]
  - FEMUR FRACTURE [None]
  - PNEUMONIA [None]
  - WEIGHT DECREASED [None]
